FAERS Safety Report 10908419 (Version 1)
Quarter: 2015Q1

REPORT INFORMATION
  Report Type: Spontaneous
  Country: US (occurrence: None)
  Receive Date: 20150309
  Receipt Date: 20150309
  Transmission Date: 20150721
  Serious: Yes (Hospitalization)
  Sender: FDA-Public Use
  Company Number: None

PATIENT
  Age: 56 Year
  Sex: Female
  Weight: 62.14 kg

DRUGS (6)
  1. VERSED [Suspect]
     Active Substance: MIDAZOLAM HYDROCHLORIDE
     Indication: BACK PAIN
  2. ULTRAM [Concomitant]
     Active Substance: TRAMADOL HYDROCHLORIDE
  3. NORTRIPTOLINE [Concomitant]
  4. IRON [Concomitant]
     Active Substance: IRON
  5. NORCO [Concomitant]
     Active Substance: ACETAMINOPHEN\HYDROCODONE BITARTRATE
  6. TYNOLA PM (SOMETIMES) [Concomitant]

REACTIONS (4)
  - Burns second degree [None]
  - Rash pruritic [None]
  - Burns third degree [None]
  - Hypersensitivity [None]

NARRATIVE: CASE EVENT DATE: 20150127
